FAERS Safety Report 23567421 (Version 2)
Quarter: 2024Q1

REPORT INFORMATION
  Report Type: Spontaneous
  Country: US (occurrence: US)
  Receive Date: 20240226
  Receipt Date: 20240301
  Transmission Date: 20240410
  Serious: No
  Sender: FDA-Public Use
  Company Number: US-BAUSCH-BL-2024-002946

PATIENT
  Age: 78 Year
  Sex: Male

DRUGS (1)
  1. PIMECROLIMUS [Suspect]
     Active Substance: PIMECROLIMUS
     Indication: Rash
     Route: 065

REACTIONS (2)
  - Rash [Not Recovered/Not Resolved]
  - Drug ineffective [Unknown]
